FAERS Safety Report 5466516-4 (Version None)
Quarter: 2007Q3

REPORT INFORMATION
  Report Type: 
  Country: None (occurrence: None)
  Receive Date: 20070820
  Receipt Date: 20070608
  Transmission Date: 20080115
  Serious: No
  Sender: FDA-Public Use
  Company Number: WAES 0706USA01449

PATIENT
  Age: 61 Year
  Sex: Male
  Weight: 112.0385 kg

DRUGS (10)
  1. JANUVIA [Suspect]
     Indication: TYPE 2 DIABETES MELLITUS
     Dosage: 100 MG/DAILY/PO
     Route: 048
     Dates: start: 20070525, end: 20070528
  2. ACTOS [Concomitant]
  3. COREG [Concomitant]
  4. DIOVAN [Concomitant]
  5. NIASPAN [Concomitant]
  6. OMACOR [Concomitant]
  7. STARLIX [Concomitant]
  8. TRICOR [Concomitant]
  9. ZETIA [Concomitant]
  10. SOTALOL HYDROCHLORIDE [Concomitant]

REACTIONS (3)
  - PRURITUS GENERALISED [None]
  - RASH ERYTHEMATOUS [None]
  - SWELLING [None]
